FAERS Safety Report 8282063-9 (Version None)
Quarter: 2012Q2

REPORT INFORMATION
  Report Type: 
  Country: None (occurrence: None)
  Receive Date: 20120413
  Receipt Date: 20120409
  Transmission Date: 20120825
  Serious: Yes (Hospitalization, Other)
  Sender: FDA-Public Use
  Company Number: US-BAYER-2011-027918

PATIENT
  Age: 86 Year
  Sex: Male
  Weight: 85.261 kg

DRUGS (15)
  1. SORAFENIB (RAF KINASE INHIBITOR) [Suspect]
     Indication: HEPATIC NEOPLASM MALIGNANT
     Dosage: 400 MG, BID
     Route: 048
     Dates: start: 20110323, end: 20110407
  2. ROPINIROLE [Concomitant]
  3. TIMOLOL MALEATE [Concomitant]
  4. DORZOLAMIDE [Concomitant]
  5. SORAFENIB (RAF KINASE INHIBITOR) [Suspect]
     Dosage: 200 MG, BID
     Route: 048
     Dates: start: 20110401, end: 20110407
  6. LASIX [Concomitant]
  7. ATENOLOL [Concomitant]
  8. OMEPRAZOLE [Concomitant]
  9. SORAFENIB (RAF KINASE INHIBITOR) [Suspect]
     Dosage: 200 MG, QD
     Route: 048
     Dates: start: 20110411, end: 20110501
  10. SORAFENIB (RAF KINASE INHIBITOR) [Suspect]
     Dosage: 200 MG, QD
     Route: 048
  11. SIMVASTATIN [Concomitant]
  12. TRAVATAN [Concomitant]
  13. SORAFENIB (RAF KINASE INHIBITOR) [Suspect]
     Dosage: 200 MG, BID
     Route: 048
     Dates: start: 20110501
  14. ISORDIL [Concomitant]
  15. FLOMAX [Concomitant]

REACTIONS (17)
  - PAIN IN EXTREMITY [None]
  - PAIN [None]
  - GAIT DISTURBANCE [None]
  - SINUS CONGESTION [None]
  - RASH [None]
  - OEDEMA PERIPHERAL [None]
  - FATIGUE [None]
  - INSOMNIA [None]
  - ACNE [None]
  - HEADACHE [None]
  - NEUROPATHY PERIPHERAL [None]
  - LOCAL SWELLING [None]
  - DYSPHONIA [None]
  - ARTHRALGIA [None]
  - DYSPNOEA [None]
  - ERYTHEMA [None]
  - ALOPECIA [None]
